FAERS Safety Report 9844323 (Version 2)
Quarter: 2014Q1

REPORT INFORMATION
  Report Type: Spontaneous
  Country: US (occurrence: US)
  Receive Date: 20140127
  Receipt Date: 20140127
  Transmission Date: 20141002
  Serious: Yes (Other)
  Sender: FDA-Public Use
  Company Number: US-BRISTOL-MYERS SQUIBB COMPANY-19830298

PATIENT
  Age: 62 Year
  Sex: Male
  Weight: 94.33 kg

DRUGS (3)
  1. BARACLUDE [Suspect]
     Indication: HEPATITIS B
     Route: 048
     Dates: start: 201006, end: 201305
  2. VIREAD [Concomitant]
     Route: 048
  3. HUMATIN [Concomitant]

REACTIONS (2)
  - Hepatitis B [Unknown]
  - Hepatic cyst [Unknown]
